FAERS Safety Report 5069486-6 (Version None)
Quarter: 2006Q3

REPORT INFORMATION
  Report Type: 
  Country: None (occurrence: None)
  Receive Date: 20060801
  Receipt Date: 20060801
  Transmission Date: 20061208
  Serious: Yes (Hospitalization)
  Sender: FDA-Public Use
  Company Number: None

PATIENT
  Age: 85 Year
  Sex: Male
  Weight: 68.9 kg

DRUGS (1)
  1. LUPRON [Suspect]
     Indication: PROSTATE CANCER
     Dosage: Q 6 MONTHS IM
     Route: 030

REACTIONS (5)
  - DEEP VEIN THROMBOSIS [None]
  - DRUG INEFFECTIVE [None]
  - HAEMOLYTIC ANAEMIA [None]
  - PNEUMONIA [None]
  - PULMONARY EMBOLISM [None]
